FAERS Safety Report 16035771 (Version 2)
Quarter: 2019Q2

REPORT INFORMATION
  Report Type: Spontaneous
  Country: US (occurrence: US)
  Receive Date: 20190305
  Receipt Date: 20190510
  Transmission Date: 20190711
  Serious: Yes (Life-Threatening, Hospitalization, Other)
  Sender: FDA-Public Use
  Company Number: US-PFIZER INC-2019093926

PATIENT
  Age: 71 Year
  Sex: Male
  Weight: 109 kg

DRUGS (1)
  1. TIKOSYN [Suspect]
     Active Substance: DOFETILIDE
     Indication: ATRIAL FIBRILLATION
     Dosage: 125 UG, TWICE DAILY
     Dates: start: 201706

REACTIONS (2)
  - Pneumonia [Unknown]
  - Pulmonary haemorrhage [Unknown]
